FAERS Safety Report 25340572 (Version 1)
Quarter: 2025Q2

REPORT INFORMATION
  Report Type: Spontaneous
  Country: GB (occurrence: GB)
  Receive Date: 20250521
  Receipt Date: 20250521
  Transmission Date: 20250717
  Serious: Yes (Other)
  Sender: AUROBINDO
  Company Number: GB-AUROBINDO-AUR-APL-2022-030974

PATIENT

DRUGS (7)
  1. FLECAINIDE [Suspect]
     Active Substance: FLECAINIDE
     Indication: Tachycardia foetal
     Dosage: 100 MILLIGRAM, 3 TIMES A DAY
     Route: 064
  2. SOTALOL [Suspect]
     Active Substance: SOTALOL
     Indication: Tachycardia foetal
     Dosage: 80 MILLIGRAM, TWO TIMES A DAY
     Route: 064
  3. AMIODARONE [Concomitant]
     Active Substance: AMIODARONE
     Indication: Supraventricular tachycardia
     Route: 065
  4. AMIODARONE [Concomitant]
     Active Substance: AMIODARONE
     Route: 065
  5. AMIODARONE [Concomitant]
     Active Substance: AMIODARONE
     Route: 048
  6. ADENOSINE [Concomitant]
     Active Substance: ADENOSINE
     Indication: Supraventricular tachycardia
     Route: 040
  7. ADENOSINE [Concomitant]
     Active Substance: ADENOSINE
     Route: 040

REACTIONS (2)
  - Drug ineffective [Unknown]
  - Foetal exposure during pregnancy [Unknown]
